FAERS Safety Report 16592475 (Version 1)
Quarter: 2019Q3

REPORT INFORMATION
  Report Type: Spontaneous
  Country: US (occurrence: US)
  Receive Date: 20190718
  Receipt Date: 20190718
  Transmission Date: 20191004
  Serious: No
  Sender: FDA-Public Use
  Company Number: US-NOVOPROD-666231

PATIENT
  Sex: Female

DRUGS (2)
  1. FIASP [Suspect]
     Active Substance: INSULIN ASPART
     Indication: DIABETES MELLITUS
     Dosage: 4IU
     Route: 058
  2. FIASP [Suspect]
     Active Substance: INSULIN ASPART
     Dosage: 12 IU, QD(6 UNITS AM, 3 UNITS PM, 3 UNIT EVENING)
     Route: 058

REACTIONS (2)
  - Blood glucose increased [Unknown]
  - Device failure [Unknown]

NARRATIVE: CASE EVENT DATE: 20190513
